FAERS Safety Report 23484932 (Version 1)
Quarter: 2024Q1

REPORT INFORMATION
  Report Type: Spontaneous
  Country: CL (occurrence: None)
  Receive Date: 20240206
  Receipt Date: 20240206
  Transmission Date: 20240410
  Serious: Yes (Disabling)
  Sender: FDA-Public Use
  Company Number: CL-ROCHE-3499871

PATIENT
  Age: 89 Year
  Sex: Female
  Weight: 77 kg

DRUGS (6)
  1. AVASTIN [Suspect]
     Active Substance: BEVACIZUMAB
     Indication: Age-related macular degeneration
     Dosage: DOSE AND FREQUENCY WERE NOT REPORTED. 1.25 MG/0.05ML
     Route: 050
  2. VABYSMO [Suspect]
     Active Substance: FARICIMAB\FARICIMAB-SVOA
     Indication: Age-related macular degeneration
     Dosage: DOSE AND FREQUENCY WERE NOT REPORTED
     Route: 065
  3. LOSARTAN [Concomitant]
     Active Substance: LOSARTAN
     Dosage: 2 TABLETS DAILY
  4. METOPROLOL [Concomitant]
     Active Substance: METOPROLOL
     Dosage: 1 TABLETS DAILY
  5. FUROSEMIDE [Concomitant]
     Active Substance: FUROSEMIDE
  6. EYLEA [Concomitant]
     Active Substance: AFLIBERCEPT
     Indication: Age-related macular degeneration

REACTIONS (2)
  - Eye disorder [Unknown]
  - Off label use [Unknown]
